FAERS Safety Report 5390178-8 (Version None)
Quarter: 2007Q3

REPORT INFORMATION
  Report Type: 
  Country: None (occurrence: None)
  Receive Date: 20070716
  Receipt Date: 20070716
  Transmission Date: 20080115
  Serious: Yes (Other)
  Sender: FDA-Public Use
  Company Number: None

PATIENT
  Age: 24 Year
  Sex: Female
  Weight: 74.8435 kg

DRUGS (2)
  1. EFFEXOR XR [Suspect]
     Indication: ANXIETY
     Dosage: 150MG  01  PO
     Route: 048
     Dates: start: 20021101
  2. EFFEXOR XR [Suspect]
     Indication: STRESS
     Dosage: 150MG  01  PO
     Route: 048
     Dates: start: 20021101

REACTIONS (20)
  - ASTHENIA [None]
  - CONFUSIONAL STATE [None]
  - DECREASED INTEREST [None]
  - DISTURBANCE IN ATTENTION [None]
  - DIZZINESS [None]
  - DRUG DEPENDENCE [None]
  - DRUG DOSE OMISSION [None]
  - DRUG WITHDRAWAL SYNDROME [None]
  - FATIGUE [None]
  - FEELING ABNORMAL [None]
  - HEADACHE [None]
  - HUNGER [None]
  - INSOMNIA [None]
  - MYALGIA [None]
  - NAUSEA [None]
  - NERVOUS SYSTEM DISORDER [None]
  - OBSESSIVE-COMPULSIVE DISORDER [None]
  - PAIN [None]
  - THINKING ABNORMAL [None]
  - TINNITUS [None]
